FAERS Safety Report 12740598 (Version 1)
Quarter: 2016Q3

REPORT INFORMATION
  Report Type: Spontaneous
  Country: US (occurrence: US)
  Receive Date: 20160914
  Receipt Date: 20160914
  Transmission Date: 20161109
  Serious: Yes (Death)
  Sender: FDA-Public Use
  Company Number: US-JNJCP-30000352942

PATIENT
  Sex: Female
  Weight: 37 kg

DRUGS (1)
  1. JOHNSON^S PRODUCTS [Suspect]
     Active Substance: UNSPECIFIED INGREDIENT
     Indication: PRODUCT USED FOR UNKNOWN INDICATION
     Dosage: THRICE DAILY
     Route: 061

REACTIONS (1)
  - Ovarian cancer [Fatal]
